FAERS Safety Report 9262629 (Version 1)
Quarter: 2013Q2

REPORT INFORMATION
  Report Type: Spontaneous
  Country: US (occurrence: None)
  Receive Date: 20130426
  Receipt Date: 20130426
  Transmission Date: 20140414
  Serious: Yes (Disabling)
  Sender: FDA-Public Use
  Company Number: None

PATIENT
  Age: 54 Year
  Sex: Female
  Weight: 54.5 kg

DRUGS (1)
  1. CIPROFLOXACIN HYDROCHLORIDE [Suspect]
     Indication: URINARY TRACT INFECTION
     Dosage: EVERY 12 HOURS.
     Route: 048
     Dates: start: 20130118, end: 20130119

REACTIONS (20)
  - Hallucination [None]
  - Balance disorder [None]
  - Dizziness [None]
  - Feeling abnormal [None]
  - Depersonalisation [None]
  - Myalgia [None]
  - Muscle tightness [None]
  - Muscle spasms [None]
  - Tendon pain [None]
  - Arthralgia [None]
  - Muscle twitching [None]
  - Burning sensation [None]
  - Paraesthesia [None]
  - Depression [None]
  - Anxiety [None]
  - Mania [None]
  - Visual impairment [None]
  - Fatigue [None]
  - Insomnia [None]
  - Superficial vein prominence [None]
